FAERS Safety Report 5497629-9 (Version None)
Quarter: 2007Q4

REPORT INFORMATION
  Report Type: 
  Country: None (occurrence: None)
  Receive Date: 20071025
  Receipt Date: 20061219
  Transmission Date: 20080405
  Serious: Yes (Hospitalization)
  Sender: FDA-Public Use
  Company Number: A0632133A

PATIENT
  Age: 24 Year
  Sex: Female

DRUGS (2)
  1. ADVAIR DISKUS 100/50 [Suspect]
     Indication: ASTHMA
     Route: 055
     Dates: end: 20060101
  2. UNSPECIFIED MEDICATION [Concomitant]

REACTIONS (2)
  - DEPRESSION [None]
  - DYSPNOEA [None]
